FAERS Safety Report 21946104 (Version 1)
Quarter: 2023Q1

REPORT INFORMATION
  Report Type: Spontaneous
  Country: US (occurrence: US)
  Receive Date: 20230202
  Receipt Date: 20230202
  Transmission Date: 20230418
  Serious: Yes (Other)
  Sender: FDA-Public Use
  Company Number: US-PFIZER INC-PV202300019087

PATIENT
  Age: 74 Year
  Sex: Female

DRUGS (4)
  1. IBRANCE [Suspect]
     Active Substance: PALBOCICLIB
     Indication: Hormone receptor positive breast cancer
     Dosage: 125 MG (2 WEEKS ON 2 WEEKS OFF)
     Dates: start: 202005
  2. IBRANCE [Suspect]
     Active Substance: PALBOCICLIB
     Indication: Invasive lobular breast carcinoma
     Dosage: 125 MG (2 WEEKS ON 2 WEEKS OFF)
     Dates: start: 20230123
  3. FEMARA [Suspect]
     Active Substance: LETROZOLE
     Indication: Breast cancer metastatic
     Dosage: UNK
  4. LETROZOLE [Suspect]
     Active Substance: LETROZOLE
     Dosage: UNK, DAILY

REACTIONS (15)
  - Pancytopenia [Unknown]
  - Thrombocytopenia [Unknown]
  - Rib fracture [Unknown]
  - Mucosal inflammation [Unknown]
  - Neoplasm progression [Unknown]
  - Arthralgia [Unknown]
  - Fatigue [Unknown]
  - Chest pain [Recovered/Resolved]
  - Malaise [Unknown]
  - Myalgia [Unknown]
  - Hot flush [Unknown]
  - Cancer pain [Unknown]
  - Diplopia [Unknown]
  - Ophthalmic migraine [Unknown]
  - Anaemia [Unknown]

NARRATIVE: CASE EVENT DATE: 20230101
